FAERS Safety Report 5822354-1 (Version None)
Quarter: 2008Q3

REPORT INFORMATION
  Report Type: 
  Country: None (occurrence: None)
  Receive Date: 20080723
  Receipt Date: 20080723
  Transmission Date: 20090109
  Serious: Yes (Hospitalization)
  Sender: FDA-Public Use
  Company Number: None

PATIENT
  Age: 49 Year
  Sex: Female
  Weight: 86 kg

DRUGS (8)
  1. PREGABILIN [Suspect]
     Indication: HYPOAESTHESIA
     Dosage: PO             SEVERAL MONTHS PRIOR
     Route: 048
  2. PREGABILIN [Suspect]
     Indication: NEUROPATHY PERIPHERAL
     Dosage: PO             SEVERAL MONTHS PRIOR
     Route: 048
  3. HEPARIN [Concomitant]
  4. APAP TAB [Concomitant]
  5. OXYCODONE HCL [Concomitant]
  6. PERCOCET [Concomitant]
  7. DILTIAZEM HCL [Concomitant]
  8. LISINOPRIL [Concomitant]

REACTIONS (3)
  - CHEST PAIN [None]
  - DIZZINESS [None]
  - SYNCOPE [None]
